FAERS Safety Report 8249995-9 (Version None)
Quarter: 2012Q1

REPORT INFORMATION
  Report Type: 
  Country: None (occurrence: None)
  Receive Date: 20120327
  Receipt Date: 20120314
  Transmission Date: 20120608
  Serious: Yes (Other)
  Sender: FDA-Public Use
  Company Number: TR-1191186

PATIENT
  Age: 8 Year
  Sex: Male
  Weight: 25 kg

DRUGS (6)
  1. LIDOCAINE [Concomitant]
  2. SEVOFLURANE [Concomitant]
  3. EPINEPHRINE [Suspect]
  4. THIOPENTAL SODIUM [Concomitant]
  5. ROCURONIUM BROMIDE [Concomitant]
  6. MIOSTAT [Suspect]

REACTIONS (1)
  - BRADYCARDIA [None]
